FAERS Safety Report 7781125-X (Version None)
Quarter: 2011Q3

REPORT INFORMATION
  Report Type: 
  Country: None (occurrence: None)
  Receive Date: 20110927
  Receipt Date: 20110921
  Transmission Date: 20111222
  Serious: Yes (Life-Threatening, Other)
  Sender: FDA-Public Use
  Company Number: PHHY2011SI84492

PATIENT
  Sex: Male

DRUGS (2)
  1. ZOMETA [Suspect]
     Indication: LANGERHANS' CELL HISTIOCYTOSIS
     Route: 042
     Dates: start: 20080101
  2. ZOMETA [Suspect]
     Route: 042
     Dates: start: 20100101

REACTIONS (4)
  - HUMERUS FRACTURE [None]
  - FOOT FRACTURE [None]
  - PAIN IN EXTREMITY [None]
  - FALL [None]
